FAERS Safety Report 19031854 (Version 1)
Quarter: 2021Q1

REPORT INFORMATION
  Report Type: Spontaneous
  Country: US (occurrence: US)
  Receive Date: 20210319
  Receipt Date: 20210319
  Transmission Date: 20210420
  Serious: No
  Sender: FDA-Public Use
  Company Number: US-PFIZER INC-2021146956

PATIENT
  Age: 58 Year
  Sex: Female

DRUGS (1)
  1. IBRANCE [Suspect]
     Active Substance: PALBOCICLIB
     Dosage: 125 MG

REACTIONS (4)
  - Hypersensitivity [Recovered/Resolved]
  - Tongue disorder [Recovered/Resolved]
  - Gastrooesophageal reflux disease [Recovering/Resolving]
  - Cough [Recovering/Resolving]
